FAERS Safety Report 16898449 (Version 1)
Quarter: 2019Q4

REPORT INFORMATION
  Report Type: Report from Study
  Country: JP (occurrence: JP)
  Receive Date: 20191009
  Receipt Date: 20191009
  Transmission Date: 20200122
  Serious: Yes (Hospitalization)
  Sender: FDA-Public Use
  Company Number: JP-EISAI MEDICAL RESEARCH-EC-2019-063202

PATIENT
  Age: 64 Year
  Sex: Male
  Weight: 58 kg

DRUGS (6)
  1. MIYA-BM [Concomitant]
     Active Substance: CLOSTRIDIUM BUTYRICUM SPORES STRAIN M-55
  2. TEGRETOL [Concomitant]
     Active Substance: CARBAMAZEPINE
  3. FEBURIC [Concomitant]
     Active Substance: FEBUXOSTAT
  4. LAMICTAL [Concomitant]
     Active Substance: LAMOTRIGINE
  5. LIXIANA [Concomitant]
     Active Substance: EDOXABAN TOSYLATE
  6. FYCOMPA [Suspect]
     Active Substance: PERAMPANEL
     Indication: PARTIAL SEIZURES
     Route: 048
     Dates: start: 20180619, end: 20180626

REACTIONS (1)
  - Somnolence [Recovering/Resolving]

NARRATIVE: CASE EVENT DATE: 20180620
